FAERS Safety Report 16908196 (Version 1)
Quarter: 2019Q4

REPORT INFORMATION
  Report Type: Spontaneous
  Country: US (occurrence: US)
  Receive Date: 20191010
  Receipt Date: 20191010
  Transmission Date: 20200122
  Serious: Yes (Hospitalization)
  Sender: FDA-Public Use
  Company Number: None

PATIENT
  Sex: Female

DRUGS (3)
  1. MEKINIST [Suspect]
     Active Substance: TRAMETINIB DIMETHYL SULFOXIDE
     Indication: MALIGNANT LYMPHOID NEOPLASM
     Route: 048
     Dates: start: 20190807
  2. ACETAMIN [Concomitant]
     Active Substance: ACETAMINOPHEN
  3. TAFINLAR [Suspect]
     Active Substance: DABRAFENIB MESYLATE
     Indication: MALIGNANT LYMPHOID NEOPLASM
     Route: 048
     Dates: start: 20190807

REACTIONS (1)
  - Shock [None]
